FAERS Safety Report 16321120 (Version 2)
Quarter: 2019Q2

REPORT INFORMATION
  Report Type: Spontaneous
  Country: US (occurrence: US)
  Receive Date: 20190516
  Receipt Date: 20190617
  Transmission Date: 20190711
  Serious: No
  Sender: FDA-Public Use
  Company Number: US-PFIZER INC-2019205832

PATIENT
  Age: 56 Year
  Sex: Male

DRUGS (3)
  1. VIAGRA [Suspect]
     Active Substance: SILDENAFIL CITRATE
     Indication: PEYRONIE^S DISEASE
     Dosage: 20 MG, EVERY 3 DAYS
     Dates: start: 2017
  2. VIAGRA [Suspect]
     Active Substance: SILDENAFIL CITRATE
     Indication: DIABETES MELLITUS
  3. VIAGRA [Suspect]
     Active Substance: SILDENAFIL CITRATE
     Indication: ERECTILE DYSFUNCTION

REACTIONS (4)
  - Nasopharyngitis [Recovered/Resolved]
  - Cough [Recovered/Resolved]
  - Hypoacusis [Recovered/Resolved]
  - Sinus disorder [Recovered/Resolved]
